FAERS Safety Report 25971865 (Version 1)
Quarter: 2025Q4

REPORT INFORMATION
  Report Type: Report from Study
  Country: TW (occurrence: TW)
  Receive Date: 20251029
  Receipt Date: 20251029
  Transmission Date: 20260118
  Serious: No
  Sender: JOHNSON AND JOHNSON
  Company Number: TW-JNJFOC-20210117266

PATIENT
  Age: 25 Year
  Sex: Female

DRUGS (4)
  1. TREMFYA [Suspect]
     Active Substance: GUSELKUMAB
     Indication: Psoriasis
     Route: 065
     Dates: start: 20191007, end: 20210628
  2. TREMFYA [Suspect]
     Active Substance: GUSELKUMAB
     Route: 065
     Dates: start: 20190911, end: 20210628
  3. TREMFYA [Suspect]
     Active Substance: GUSELKUMAB
  4. TREMFYA [Suspect]
     Active Substance: GUSELKUMAB

REACTIONS (4)
  - Cholelithiasis [Unknown]
  - Hepatic steatosis [Unknown]
  - Drug ineffective [Unknown]
  - COVID-19 [Unknown]

NARRATIVE: CASE EVENT DATE: 20200731
